FAERS Safety Report 10465286 (Version 2)
Quarter: 2014Q4

REPORT INFORMATION
  Report Type: Spontaneous
  Country: JP (occurrence: JP)
  Receive Date: 20140919
  Receipt Date: 20141003
  Transmission Date: 20150528
  Serious: Yes (Death)
  Sender: FDA-Public Use
  Company Number: JP-SA-2014SA125655

PATIENT
  Age: 62 Year
  Sex: Male
  Weight: 110 kg

DRUGS (14)
  1. APLEWAY [Suspect]
     Active Substance: TOFOGLIFLOZIN
     Indication: TYPE 2 DIABETES MELLITUS
     Dosage: STRENGTH: 20 MG
     Route: 048
     Dates: start: 201405
  2. RENIVACE [Suspect]
     Active Substance: ENALAPRIL
     Dosage: STRENGTH: 5
     Route: 065
  3. ORAL ANTIDIABETICS [Concomitant]
     Active Substance: UNSPECIFIED INGREDIENT
  4. WARFARIN [Suspect]
     Active Substance: WARFARIN
     Route: 065
  5. LANTUS SOLOSTAR [Suspect]
     Active Substance: INSULIN GLARGINE
     Indication: TYPE 2 DIABETES MELLITUS
     Dosage: DOSE:20 UNIT(S)
     Route: 058
     Dates: start: 200810
  6. INSULIN [Concomitant]
     Active Substance: INSULIN NOS
  7. AMARYL [Suspect]
     Active Substance: GLIMEPIRIDE
     Indication: TYPE 2 DIABETES MELLITUS
     Route: 048
     Dates: start: 200605
  8. LASIX [Suspect]
     Active Substance: FUROSEMIDE
     Route: 065
  9. ALDACTONE [Suspect]
     Active Substance: SPIRONOLACTONE
     Route: 065
  10. ARTIST [Suspect]
     Active Substance: CARVEDILOL
     Route: 065
  11. APIDRA SOLOSTAR [Suspect]
     Active Substance: INSULIN GLULISINE
     Indication: TYPE 2 DIABETES MELLITUS
     Dosage: DOSE:8 UNIT(S)
     Route: 058
  12. SOLOSTAR [Concomitant]
     Active Substance: DEVICE
  13. BASEN [Suspect]
     Active Substance: VOGLIBOSE
     Indication: TYPE 2 DIABETES MELLITUS
     Dosage: STRENGTH:0.3
     Route: 065
     Dates: start: 200605
  14. LIVALO [Suspect]
     Active Substance: PITAVASTATIN CALCIUM
     Dosage: STRENGTH:2MG
     Route: 065

REACTIONS (3)
  - Hyperglycaemia [Fatal]
  - Diabetic hyperglycaemic coma [Fatal]
  - Confusional state [Fatal]

NARRATIVE: CASE EVENT DATE: 20140912
